FAERS Safety Report 16735584 (Version 3)
Quarter: 2023Q1

REPORT INFORMATION
  Report Type: Spontaneous
  Country: DE (occurrence: DE)
  Receive Date: 20190823
  Receipt Date: 20230327
  Transmission Date: 20230418
  Serious: Yes (Other)
  Sender: FDA-Public Use
  Company Number: PHHY2019DE193746

PATIENT
  Age: 69 Year
  Sex: Male
  Weight: 78 kg

DRUGS (3)
  1. PEMETREXED [Suspect]
     Active Substance: PEMETREXED
     Indication: Non-small cell lung cancer
     Dosage: 980 MG (STARTING DOSE AT 980 MILLIGRAM; FLUCTUATED DOSAGE)
     Route: 065
     Dates: start: 20190327, end: 20190619
  2. CARBOPLATIN [Suspect]
     Active Substance: CARBOPLATIN
     Indication: Non-small cell lung cancer
     Dosage: 547 MG (STARTING DOSE AT 547 MILLIGRAM; FLUCTUATED DOSAGE)
     Route: 065
     Dates: start: 20190327, end: 20190529
  3. PEMBROLIZUMAB [Suspect]
     Active Substance: PEMBROLIZUMAB
     Indication: Non-small cell lung cancer
     Dosage: 200 MG
     Route: 065
     Dates: start: 20190327, end: 20190619

REACTIONS (1)
  - Tubulointerstitial nephritis [Not Recovered/Not Resolved]

NARRATIVE: CASE EVENT DATE: 20190717
